FAERS Safety Report 11681464 (Version 1)
Quarter: 2015Q4

REPORT INFORMATION
  Report Type: Spontaneous
  Country: US (occurrence: None)
  Receive Date: 20151027
  Receipt Date: 20151027
  Transmission Date: 20160304
  Serious: No
  Sender: FDA-Public Use
  Company Number: 15AE051

PATIENT
  Age: 88 Year
  Sex: Female

DRUGS (1)
  1. EQUATE IBUPROFEN [Suspect]
     Active Substance: IBUPROFEN
     Indication: BACK PAIN
     Dates: start: 20151008, end: 20151022

REACTIONS (2)
  - Dry mouth [None]
  - Dry eye [None]

NARRATIVE: CASE EVENT DATE: 20151022
